FAERS Safety Report 17914631 (Version 1)
Quarter: 2020Q2

REPORT INFORMATION
  Report Type: Spontaneous
  Country: BR (occurrence: BR)
  Receive Date: 20200619
  Receipt Date: 20200619
  Transmission Date: 20200714
  Serious: Yes (Other)
  Sender: FDA-Public Use
  Company Number: BR-AMGEN-BRASP2020096743

PATIENT
  Age: 62 Year
  Sex: Female

DRUGS (1)
  1. ENBREL [Suspect]
     Active Substance: ETANERCEPT
     Indication: PSORIATIC ARTHROPATHY
     Dosage: UNK
     Route: 065
     Dates: end: 201912

REACTIONS (7)
  - Loss of personal independence in daily activities [Unknown]
  - Pain in extremity [Recovered/Resolved]
  - Fall [Unknown]
  - Tendon disorder [Unknown]
  - Musculoskeletal pain [Recovered/Resolved]
  - Osteoporosis [Unknown]
  - Limb injury [Unknown]

NARRATIVE: CASE EVENT DATE: 202004
